FAERS Safety Report 25534517 (Version 1)
Quarter: 2025Q3

REPORT INFORMATION
  Report Type: Report from Study
  Country: EU (occurrence: EU)
  Receive Date: 20250709
  Receipt Date: 20250709
  Transmission Date: 20251021
  Serious: Yes (Hospitalization)
  Sender: ABBVIE
  Company Number: EU-ABBVIE-5724308

PATIENT
  Age: 64 Year
  Sex: Male

DRUGS (3)
  1. FOSCARBIDOPA\FOSLEVODOPA [Suspect]
     Active Substance: FOSCARBIDOPA\FOSLEVODOPA
     Indication: Parkinson^s disease
     Route: 058
     Dates: start: 20240129
  2. FOSCARBIDOPA\FOSLEVODOPA [Suspect]
     Active Substance: FOSCARBIDOPA\FOSLEVODOPA
     Route: 058
     Dates: start: 2024, end: 2024
  3. FOSCARBIDOPA\FOSLEVODOPA [Suspect]
     Active Substance: FOSCARBIDOPA\FOSLEVODOPA
     Route: 058
     Dates: start: 2024

REACTIONS (18)
  - Infusion site inflammation [Recovering/Resolving]
  - Infusion site inflammation [Not Recovered/Not Resolved]
  - Infusion site scab [Not Recovered/Not Resolved]
  - Infusion site inflammation [Not Recovered/Not Resolved]
  - Infusion site abscess [Not Recovered/Not Resolved]
  - Infusion site inflammation [Recovered/Resolved]
  - Feeling abnormal [Unknown]
  - Infusion site discolouration [Not Recovered/Not Resolved]
  - Infusion site extravasation [Not Recovered/Not Resolved]
  - Infusion site inflammation [Not Recovered/Not Resolved]
  - Infusion site haemorrhage [Not Recovered/Not Resolved]
  - Infusion site nodule [Not Recovered/Not Resolved]
  - Infusion site inflammation [Not Recovered/Not Resolved]
  - On and off phenomenon [Recovering/Resolving]
  - Infusion site discharge [Unknown]
  - Incorrect dose administered [Unknown]
  - Infusion site infection [Recovering/Resolving]
  - Infusion site infection [Recovered/Resolved]

NARRATIVE: CASE EVENT DATE: 20240101
